FAERS Safety Report 16596810 (Version 1)
Quarter: 2019Q3

REPORT INFORMATION
  Report Type: Spontaneous
  Country: FR (occurrence: FR)
  Receive Date: 20190719
  Receipt Date: 20190719
  Transmission Date: 20191004
  Serious: Yes (Hospitalization)
  Sender: FDA-Public Use
  Company Number: FR-TOLMAR, INC.-2019FR007433

PATIENT

DRUGS (4)
  1. CORDARONE [Suspect]
     Active Substance: AMIODARONE HYDROCHLORIDE
     Indication: ATRIAL FLUTTER
     Dosage: 1000 MG,  ONCE WEEKLY
     Route: 048
     Dates: start: 20160310, end: 20190618
  2. ELIGARD [Suspect]
     Active Substance: LEUPROLIDE ACETATE
     Indication: PROSTATE CANCER
     Dosage: 22.5 MG, Q3MONTHS
     Route: 058
     Dates: start: 20181227, end: 20190327
  3. TAMSULOSIN [Suspect]
     Active Substance: TAMSULOSIN
     Indication: PROSTATE CANCER
     Dosage: 0.4 MG, ONCE DAILY
     Route: 048
  4. ELIQUIS [Concomitant]
     Active Substance: APIXABAN
     Route: 065

REACTIONS (2)
  - Dyspnoea exertional [Recovering/Resolving]
  - Interstitial lung disease [Not Recovered/Not Resolved]

NARRATIVE: CASE EVENT DATE: 20190518
